FAERS Safety Report 4311129-0 (Version None)
Quarter: 2004Q1

REPORT INFORMATION
  Report Type: 
  Country: None (occurrence: None)
  Receive Date: 20040302
  Receipt Date: 20040302
  Transmission Date: 20041129
  Serious: No
  Sender: FDA-Public Use
  Company Number: None

PATIENT
  Sex: Male

DRUGS (7)
  1. METFORMIN HCL [Suspect]
     Indication: DIABETES MELLITUS
  2. ACTONEL [Concomitant]
  3. VERAPAMIL [Concomitant]
  4. NITROGLYCERIN [Concomitant]
  5. HYDROXYCHLOR [Concomitant]
  6. LIPITOR [Concomitant]
  7. GLYBURIDE [Concomitant]

REACTIONS (1)
  - DIABETES MELLITUS INADEQUATE CONTROL [None]
